FAERS Safety Report 7247724-9 (Version None)
Quarter: 2011Q1

REPORT INFORMATION
  Report Type: 
  Country: None (occurrence: None)
  Receive Date: 20110127
  Receipt Date: 20110118
  Transmission Date: 20110831
  Serious: Yes (Hospitalization)
  Sender: FDA-Public Use
  Company Number: JP-JNJFOC-20110105857

PATIENT
  Age: 71 Year
  Sex: Male
  Weight: 65 kg

DRUGS (10)
  1. REMICADE [Suspect]
     Indication: PSORIASIS
     Route: 042
  2. RINDERON- VG [Concomitant]
     Indication: PSORIASIS
     Route: 065
  3. REMICADE [Suspect]
     Route: 042
  4. REMICADE [Suspect]
     Route: 042
  5. REMICADE [Suspect]
     Route: 042
  6. ISCOTIN [Concomitant]
     Indication: ANTIBIOTIC PROPHYLAXIS
  7. BAKTAR [Concomitant]
     Indication: PROPHYLAXIS
     Dosage: 1 TAB
     Route: 048
  8. REMICADE [Suspect]
     Route: 042
  9. BETNOVAT [Concomitant]
     Indication: PSORIASIS
  10. DIACORT [Concomitant]
     Indication: PSORIASIS

REACTIONS (1)
  - PANCREATIC CARCINOMA [None]
